FAERS Safety Report 9783329 (Version 2)
Quarter: 2014Q3

REPORT INFORMATION
  Report Type: Spontaneous
  Country: US (occurrence: US)
  Receive Date: 20131226
  Receipt Date: 20140918
  Transmission Date: 20150326
  Serious: Yes (Hospitalization, Other)
  Sender: FDA-Public Use
  Company Number: US-BAYER-2013-155701

PATIENT
  Age: 26 Year
  Sex: Female
  Weight: 65.76 kg

DRUGS (13)
  1. AMOXIL [Concomitant]
     Active Substance: AMOXICILLIN
     Indication: STREPTOCOCCAL INFECTION
  2. HYDROCODONE BIT/APAP [Concomitant]
     Active Substance: ACETAMINOPHEN\HYDROCODONE BITARTRATE
     Indication: PAIN
     Dosage: 5/500 MG 1 Q 6 HRS PRN
  3. YAZ [Suspect]
     Active Substance: DROSPIRENONE\ETHINYL ESTRADIOL
     Indication: CONTRACEPTION
     Dosage: UNK
     Route: 048
     Dates: start: 20080924, end: 20091211
  4. AZITHROMYCIN [Concomitant]
     Active Substance: AZITHROMYCIN ANHYDROUS
     Dosage: 250 MG, UNK
  5. FERROUS SULFATE [Concomitant]
     Active Substance: FERROUS SULFATE\FERROUS SULFATE, DRIED
     Dosage: 325 MG, UNK
     Route: 048
  6. ZICAM NOS [Concomitant]
     Active Substance: ACETAMINOPHEN\CHLORPHENIRAMINE MALEATE\DEXTROMETHORPHAN HYDROBROMIDE\PHENYLEPHRINE HYDROCHLORIDE OR ACETAMINOPHEN\DEXTROMETHORPHAN HYDROBROMIDE\DOXYLAMINE SUCCINATE\PHENYLEPHRINE HYDROCHLORIDE
     Dosage: AS ORDERED
  7. NAPROXEN. [Concomitant]
     Active Substance: NAPROXEN
     Dosage: 500 MG, 1 TAB 2 TIMES A DAY
     Route: 048
  8. ZITHROMAX [Concomitant]
     Active Substance: AZITHROMYCIN DIHYDRATE
     Dosage: AS DIRECTED
  9. AMOXICILLIN W/CLAVULANIC ACID [Concomitant]
     Active Substance: AMOXICILLIN\CLAVULANIC ACID
     Dosage: 875-125 1 TABLET EVERY 12 HOURS FOR 10 DAYS
     Route: 048
  10. HYDROCODONE/ACETAMINOPHEN [Concomitant]
     Active Substance: ACETAMINOPHEN\HYDROCODONE
     Indication: PAIN
     Dosage: 5-500 MG ONE TABLET EVERY 6 HOURS AS NEEDED
     Route: 048
  11. AMOXICILLIN. [Concomitant]
     Active Substance: AMOXICILLIN
     Indication: OROPHARYNGEAL PAIN
     Dosage: 500 MG, ONE CAPSULE THREE TIMES DAILY FOR 7 DAYS
     Route: 048
  12. CLARITIN-D 12 HOUR [Concomitant]
     Active Substance: LORATADINE\PSEUDOEPHEDRINE SULFATE
     Indication: NASAL CONGESTION
     Dosage: 5 MG-120 MG 1 TAB EVERY 12 HOURS PRN
     Route: 048
  13. AUGMENTIN [Concomitant]
     Active Substance: AMOXICILLIN\CLAVULANATE POTASSIUM
     Dosage: 875 MG-125 MG 1 TAB EVERY 12 HOURS

REACTIONS (15)
  - Dyspnoea [Not Recovered/Not Resolved]
  - Activities of daily living impaired [None]
  - Pulmonary embolism [Not Recovered/Not Resolved]
  - Rash [None]
  - Anaemia [None]
  - General physical health deterioration [Not Recovered/Not Resolved]
  - Anxiety [None]
  - Injury [Not Recovered/Not Resolved]
  - High risk pregnancy [None]
  - Gallbladder disorder [None]
  - Pain [Not Recovered/Not Resolved]
  - Fatigue [None]
  - Emotional distress [None]
  - Pain [None]
  - Dizziness [None]

NARRATIVE: CASE EVENT DATE: 20091208
